FAERS Safety Report 9769887 (Version 1)
Quarter: 2013Q4

REPORT INFORMATION
  Report Type: Spontaneous
  Country: US (occurrence: US)
  Receive Date: 20131218
  Receipt Date: 20131218
  Transmission Date: 20140711
  Serious: No
  Sender: FDA-Public Use
  Company Number: US-VERTEX PHARMACEUTICALS INC-AE-2011-000682

PATIENT
  Age: 64 Year
  Sex: Male
  Weight: 70.91 kg

DRUGS (4)
  1. INCIVEK [Suspect]
     Indication: HEPATITIS C
     Dates: start: 20110712
  2. RIBAVIRIN [Concomitant]
     Indication: HEPATITIS C
     Route: 048
     Dates: start: 201104, end: 20110725
  3. RIBAVIRIN [Concomitant]
     Dates: start: 20110726
  4. PEGINTERFERON ALPHA-2A [Concomitant]
     Indication: HEPATITIS C
     Route: 058
     Dates: start: 201104

REACTIONS (3)
  - Dry skin [Not Recovered/Not Resolved]
  - Pruritus [Not Recovered/Not Resolved]
  - Haemoglobin decreased [Unknown]
